FAERS Safety Report 5288740-6 (Version None)
Quarter: 2007Q2

REPORT INFORMATION
  Report Type: 
  Country: None (occurrence: None)
  Receive Date: 20070405
  Receipt Date: 20070402
  Transmission Date: 20071010
  Serious: Yes (Hospitalization)
  Sender: FDA-Public Use
  Company Number: US-BOEHRINGER INGELHEIM PHARMACEUTICALS, INC.-2007-DE-01920GD

PATIENT
  Age: 79 Year
  Sex: Male

DRUGS (3)
  1. CLONIDINE [Suspect]
     Indication: NEURALGIA
     Route: 037
     Dates: start: 20021201
  2. FENTANYL [Concomitant]
     Indication: NEURALGIA
     Route: 037
     Dates: start: 20021201
  3. BUPIVACAINE [Concomitant]
     Indication: NEURALGIA
     Route: 037
     Dates: start: 20021201

REACTIONS (5)
  - DEPRESSION [None]
  - DRY MOUTH [None]
  - INSOMNIA [None]
  - SLEEP TERROR [None]
  - TREMOR [None]
